FAERS Safety Report 19386093 (Version 1)
Quarter: 2021Q2

REPORT INFORMATION
  Report Type: Report from Study
  Country: US (occurrence: US)
  Receive Date: 20210607
  Receipt Date: 20210607
  Transmission Date: 20210717
  Serious: No
  Sender: FDA-Public Use
  Company Number: US-SUNOVION-2021SUN002027

PATIENT
  Age: 48 Year

DRUGS (1)
  1. KYNMOBI [Suspect]
     Active Substance: APOMORPHINE HYDROCHLORIDE
     Indication: PARKINSON^S DISEASE
     Dosage: 10 MG
     Route: 060
     Dates: start: 20210521

REACTIONS (3)
  - Pharyngeal swelling [Unknown]
  - Nausea [Unknown]
  - Oral pain [Unknown]

NARRATIVE: CASE EVENT DATE: 20210521
